FAERS Safety Report 4499901-8 (Version None)
Quarter: 2004Q4

REPORT INFORMATION
  Report Type: 
  Country: None (occurrence: None)
  Receive Date: 20041112
  Receipt Date: 20041102
  Transmission Date: 20050328
  Serious: Yes (Hospitalization)
  Sender: FDA-Public Use
  Company Number: FRWYE165302NOV04

PATIENT
  Age: 70 Year
  Sex: Male
  Weight: 79 kg

DRUGS (6)
  1. ENBREL [Suspect]
     Indication: RHEUMATOID ARTHRITIS
     Route: 058
     Dates: start: 20000101, end: 20040312
  2. METHOTREXATE [Suspect]
     Indication: RHEUMATOID ARTHRITIS
     Dosage: UNKNOWN
     Route: 048
     Dates: start: 20010715, end: 20040312
  3. AMLOR [Concomitant]
     Dosage: UNKNOWN
  4. SALMETEROL [Concomitant]
     Dosage: UNKNOWN
  5. FONZYLANE [Concomitant]
     Dosage: UNKNOWN
  6. TRINITRINE [Concomitant]
     Dosage: UNKNOWN

REACTIONS (4)
  - NEUTROPENIA [None]
  - PNEUMONITIS [None]
  - PULMONARY FIBROSIS [None]
  - PYREXIA [None]
